FAERS Safety Report 9005534 (Version 2)
Quarter: 2013Q1

REPORT INFORMATION
  Report Type: Spontaneous
  Country: US (occurrence: US)
  Receive Date: 20130109
  Receipt Date: 20130325
  Transmission Date: 20140127
  Serious: Yes (Death)
  Sender: FDA-Public Use
  Company Number: US-PFIZER INC-2013005873

PATIENT
  Age: 43 Year
  Sex: Female

DRUGS (6)
  1. VENLAFAXINE HYDROCHLORIDE [Suspect]
     Dosage: UNK
     Route: 048
  2. DOXEPIN HCL [Suspect]
     Dosage: UNK
     Route: 065
  3. FLUOXETINE HYDROCHLORIDE [Suspect]
     Dosage: UNK
     Route: 065
  4. METHAMPHETAMINE [Suspect]
     Dosage: UNK
     Route: 065
  5. CITALOPRAM [Suspect]
     Dosage: UNK
     Route: 065
  6. MILNACIPRAN [Suspect]
     Dosage: UNK
     Route: 065

REACTIONS (1)
  - Drug abuse [Fatal]
